FAERS Safety Report 9921192 (Version 1)
Quarter: 2014Q1

REPORT INFORMATION
  Report Type: Spontaneous
  Country: US (occurrence: None)
  Receive Date: 20140221
  Receipt Date: 20140221
  Transmission Date: 20141002
  Serious: Yes (Other)
  Sender: FDA-Public Use
  Company Number: None

PATIENT
  Age: 48 Year
  Sex: Male

DRUGS (1)
  1. LISINOPRIL 20 MG [Suspect]
     Indication: HYPERTENSION
     Dosage: ON LISINOPRIL- 1 MONTH PRIOR TO ALLERGIC REACTION AAND ED VISIT TO TRAMAN ?20 MG ORAL TABLET?1 TAB PO , DAILY?DAILY
     Route: 048

REACTIONS (1)
  - Hypersensitivity [None]
